FAERS Safety Report 5155518-3 (Version None)
Quarter: 2006Q4

REPORT INFORMATION
  Report Type: 
  Country: None (occurrence: None)
  Receive Date: 20061114
  Receipt Date: 20061101
  Transmission Date: 20070319
  Serious: Yes (Other)
  Sender: FDA-Public Use
  Company Number: HQWYE176402NOV06

PATIENT
  Age: 44 Year
  Sex: Male

DRUGS (20)
  1. TYGACIL [Suspect]
     Indication: ACINETOBACTER INFECTION
     Dosage: 50 MG 2X PER 1 DAY, INTRAVENOUS
     Route: 042
     Dates: start: 20061017
  2. TYGACIL [Suspect]
     Indication: PNEUMONIA
     Dosage: 50 MG 2X PER 1 DAY, INTRAVENOUS
     Route: 042
     Dates: start: 20061017
  3. CIPRO [Concomitant]
  4. FLAGYL [Concomitant]
  5. REGLAN [Concomitant]
  6. FLUCONAZOLE [Concomitant]
  7. DOCUSATE SODIUM (DOCUSATE SODIUM) [Concomitant]
  8. HEPARIN [Concomitant]
  9. DIPHENHYDRAMINE HCL [Concomitant]
  10. COLISTIN (COLISTIN) [Concomitant]
  11. SILVADENE (SULFADIAZINE SILVER) [Concomitant]
  12. ASCORBIC ACID [Concomitant]
  13. HYDROMORPHONE HCL [Concomitant]
  14. SANTYL [Concomitant]
  15. FENTANYL [Concomitant]
  16. ZINC SULFATE (ZINC SULFATE) [Concomitant]
  17. MORPHINE [Concomitant]
  18. CARAFATE [Concomitant]
  19. PROPOFOL [Concomitant]
  20. TYLENOL [Concomitant]

REACTIONS (1)
  - RENAL TUBULAR NECROSIS [None]
